FAERS Safety Report 8776975 (Version 2)
Quarter: 2012Q4

REPORT INFORMATION
  Report Type: 
  Country: IE (occurrence: IE)
  Receive Date: 20120911
  Receipt Date: 20121009
  Transmission Date: 20130627
  Serious: Yes (Other)
  Sender: FDA-Public Use
  Company Number: IE-MPIJNJ-2012-06182

PATIENT

DRUGS (8)
  1. VELCADE [Suspect]
     Indication: MULTIPLE MYELOMA
     Dosage: 1.3 mg/m2, UNK
     Route: 065
  2. DEXAMETHASONE [Concomitant]
  3. CARDURA [Concomitant]
  4. ZISPIN [Concomitant]
  5. GLUCOSAMINE [Concomitant]
  6. ALLOPURINOL [Concomitant]
  7. LANSOPRAZOLE [Concomitant]
  8. VALTREX [Concomitant]

REACTIONS (2)
  - Palpitations [Recovered/Resolved]
  - Extrasystoles [Recovered/Resolved]
